FAERS Safety Report 9355056 (Version 35)
Quarter: 2016Q2

REPORT INFORMATION
  Report Type: Report from Study
  Country: FR (occurrence: FR)
  Receive Date: 20130619
  Receipt Date: 20160520
  Transmission Date: 20160815
  Serious: Yes (Life-Threatening, Hospitalization, Other)
  Sender: FDA-Public Use
  Company Number: FR-ROCHE-1235051

PATIENT
  Age: 58 Year
  Sex: Female
  Weight: 47 kg

DRUGS (8)
  1. ACEBUTOLOL [Concomitant]
     Active Substance: ACEBUTOLOL
     Route: 065
     Dates: start: 200803
  2. TRASTUZUMAB EMTANSINE [Suspect]
     Active Substance: ADO-TRASTUZUMAB EMTANSINE
     Indication: HER-2 POSITIVE BREAST CANCER
     Dosage: MOST RECENT DOSE PRIOR TO OTORHINOLARYNGOLOGICAL HEMORRHAGE WAS TAKEN ON 24/JAN/2013  ?THE LAST DOSE
     Route: 042
     Dates: start: 20130104, end: 20130606
  3. CLOPIDOGREL [Concomitant]
     Active Substance: CLOPIDOGREL BISULFATE
     Route: 065
     Dates: start: 200803
  4. ATORVASTATIN [Concomitant]
     Active Substance: ATORVASTATIN
     Route: 065
     Dates: start: 200803
  5. TRASTUZUMAB EMTANSINE [Suspect]
     Active Substance: ADO-TRASTUZUMAB EMTANSINE
     Dosage: DATE OF LAST DOSE PRIOR TO OTORHINOLARYNGOLOGICAL HEMORRHAGE WORSENED TO GRADE 3 RESULTING IN ANEMIA
     Route: 042
     Dates: start: 20130628, end: 20130905
  6. CACIT VITAMINE D3 [Concomitant]
     Active Substance: CALCIUM CARBONATE\CHOLECALCIFEROL
     Dosage: 1000MG/880IU
     Route: 065
     Dates: start: 200812
  7. KARDEGIC [Concomitant]
     Active Substance: ASPIRIN LYSINE
     Route: 065
     Dates: start: 20130608, end: 20131119
  8. PERINDOPRIL [Concomitant]
     Active Substance: PERINDOPRIL
     Route: 065
     Dates: start: 200803

REACTIONS (5)
  - Endocarditis [Recovered/Resolved]
  - Acute pulmonary oedema [Recovered/Resolved]
  - Respiratory tract haemorrhage [Not Recovered/Not Resolved]
  - Systemic lupus erythematosus [Recovered/Resolved]
  - Anaemia [Recovered/Resolved]

NARRATIVE: CASE EVENT DATE: 20130213
